FAERS Safety Report 10607656 (Version 3)
Quarter: 2014Q4

REPORT INFORMATION
  Report Type: Spontaneous
  Country: GB (occurrence: GB)
  Receive Date: 20141125
  Receipt Date: 20141216
  Transmission Date: 20150529
  Serious: Yes (Other)
  Sender: FDA-Public Use
  Company Number: GB-ACTAVIS-2014-25171

PATIENT
  Age: 54 Year
  Sex: Male

DRUGS (4)
  1. VOLTAROL [Suspect]
     Active Substance: DICLOFENAC SODIUM
     Indication: PAIN IN EXTREMITY
     Dosage: 50 MG, UNKNOWN
     Route: 048
  2. VOLTAROL [Suspect]
     Active Substance: DICLOFENAC SODIUM
     Indication: INTERVERTEBRAL DISC DEGENERATION
  3. FENTANYL. [Concomitant]
     Active Substance: FENTANYL
     Indication: PRODUCT USED FOR UNKNOWN INDICATION
     Dosage: UNK
     Route: 062
  4. DICLOFENAC (UNKNOWN) [Suspect]
     Active Substance: DICLOFENAC SODIUM
     Indication: PRODUCT USED FOR UNKNOWN INDICATION
     Dosage: UNK
     Route: 065

REACTIONS (9)
  - Gout [Unknown]
  - Muscle twitching [Unknown]
  - Myocardial infarction [Unknown]
  - Cardiac disorder [Unknown]
  - Muscle spasms [Unknown]
  - Bundle branch block [Unknown]
  - Nausea [Unknown]
  - Drug ineffective [Unknown]
  - Aortic valve disease [Unknown]

NARRATIVE: CASE EVENT DATE: 1999
